FAERS Safety Report 5577005-0 (Version None)
Quarter: 2007Q4

REPORT INFORMATION
  Report Type: 
  Country: None (occurrence: None)
  Receive Date: 20071228
  Receipt Date: 20071219
  Transmission Date: 20080405
  Serious: Yes (Other)
  Sender: FDA-Public Use
  Company Number: FR-ABBOTT-07P-056-0430772-00

PATIENT
  Age: 49 Year
  Sex: Female

DRUGS (3)
  1. HUMIRA [Suspect]
     Indication: SPONDYLITIS
     Route: 058
  2. HUMIRA [Suspect]
     Indication: LEUKOCYTE ANTIGEN B-27 POSITIVE
  3. LEVOTHYROXINE SODIUM [Concomitant]
     Indication: DRUG USE FOR UNKNOWN INDICATION
     Route: 048

REACTIONS (5)
  - ACCOMMODATION DISORDER [None]
  - EYE DISORDER [None]
  - FATIGUE [None]
  - VISUAL FIELD TESTS ABNORMAL [None]
  - VITREOUS FLOATERS [None]
